FAERS Safety Report 16688023 (Version 2)
Quarter: 2019Q3

REPORT INFORMATION
  Report Type: Spontaneous
  Country: RU (occurrence: RU)
  Receive Date: 20190809
  Receipt Date: 20190809
  Transmission Date: 20191004
  Serious: Yes (Other)
  Sender: FDA-Public Use
  Company Number: PHHY2019RU181013

PATIENT
  Age: 8 Year
  Sex: Male

DRUGS (4)
  1. CICLOSPORIN [Suspect]
     Active Substance: CYCLOSPORINE
     Indication: DERMATOMYOSITIS
     Dosage: UNK
     Route: 065
     Dates: end: 201611
  2. ABATACEPT [Suspect]
     Active Substance: ABATACEPT
     Indication: DERMATOMYOSITIS
     Dosage: UNK
     Route: 065
     Dates: end: 201611
  3. ETANERCEPT [Suspect]
     Active Substance: ETANERCEPT
     Indication: DERMATOMYOSITIS
     Dosage: UNK
     Route: 065
     Dates: start: 201606, end: 201611
  4. PREDNISOLONE. [Suspect]
     Active Substance: PREDNISOLONE
     Indication: DERMATOMYOSITIS
     Dosage: UNK
     Route: 042
     Dates: end: 201611

REACTIONS (8)
  - Aphthous ulcer [Unknown]
  - Cheilitis [Unknown]
  - Diffuse alopecia [Unknown]
  - Systemic lupus erythematosus [Unknown]
  - Cognitive disorder [Unknown]
  - Product use in unapproved indication [Unknown]
  - Rash [Unknown]
  - Dermatomyositis [Unknown]
